FAERS Safety Report 7711515-2 (Version None)
Quarter: 2011Q3

REPORT INFORMATION
  Report Type: 
  Country: None (occurrence: None)
  Receive Date: 20110826
  Receipt Date: 20110810
  Transmission Date: 20111222
  Serious: Yes (Death)
  Sender: FDA-Public Use
  Company Number: DK-UCBSA-038875

PATIENT
  Age: 48 Year

DRUGS (5)
  1. NORTRIPTYLINE HCL [Suspect]
  2. AMITRIPTYLINE HCL [Suspect]
  3. AMLODIPINE [Suspect]
  4. PHENYTOIN [Suspect]
  5. LEVETIRACETAM [Suspect]

REACTIONS (1)
  - DEATH [None]
